FAERS Safety Report 11079893 (Version 2)
Quarter: 2015Q3

REPORT INFORMATION
  Report Type: Report from Study
  Country: DE (occurrence: DE)
  Receive Date: 20150430
  Receipt Date: 20150806
  Transmission Date: 20151125
  Serious: Yes (Other)
  Sender: FDA-Public Use
  Company Number: DE-TEVA-558916GER

PATIENT
  Age: 44 Year
  Sex: Male

DRUGS (1)
  1. COPAXONE [Suspect]
     Active Substance: GLATIRAMER ACETATE
     Indication: MULTIPLE SCLEROSIS
     Dosage: 20 MILLIGRAM DAILY;
     Route: 058
     Dates: start: 20080101

REACTIONS (2)
  - Embolia cutis medicamentosa [Recovered/Resolved]
  - Injection site necrosis [Recovered/Resolved]

NARRATIVE: CASE EVENT DATE: 201504
